FAERS Safety Report 23169066 (Version 1)
Quarter: 2023Q4

REPORT INFORMATION
  Report Type: Spontaneous
  Country: IN (occurrence: IN)
  Receive Date: 20231110
  Receipt Date: 20231110
  Transmission Date: 20240110
  Serious: Yes (Other)
  Sender: FDA-Public Use
  Company Number: IN-CADILA HEALTHCARE LIMITED-IN-ZYDUS-099883

PATIENT

DRUGS (1)
  1. AZATHIOPRINE [Suspect]
     Active Substance: AZATHIOPRINE
     Indication: Colitis ulcerative
     Dosage: 100 MILLIGRAM, QD
     Route: 065

REACTIONS (9)
  - Gingival hypertrophy [Recovering/Resolving]
  - Decreased appetite [Unknown]
  - Mouth ulceration [Unknown]
  - Oedema peripheral [Unknown]
  - Skin exfoliation [Unknown]
  - Pyrexia [Unknown]
  - Rash macular [Unknown]
  - Alopecia [Unknown]
  - Pancytopenia [Unknown]
